FAERS Safety Report 14505636 (Version 8)
Quarter: 2021Q1

REPORT INFORMATION
  Report Type: Spontaneous
  Country: US (occurrence: US)
  Receive Date: 20180208
  Receipt Date: 20210212
  Transmission Date: 20210419
  Serious: Yes (Other)
  Sender: FDA-Public Use
  Company Number: US-PFIZER INC-2018055509

PATIENT
  Age: 43 Year
  Sex: Female

DRUGS (1)
  1. VENLAFAXINE HCL [Suspect]
     Active Substance: VENLAFAXINE HYDROCHLORIDE
     Dosage: UNK

REACTIONS (5)
  - Seizure [Unknown]
  - Migraine [Unknown]
  - Drug hypersensitivity [Unknown]
  - Oral pruritus [Unknown]
  - Pruritus [Unknown]
